FAERS Safety Report 16961529 (Version 1)
Quarter: 2019Q4

REPORT INFORMATION
  Report Type: Spontaneous
  Country: IT (occurrence: IT)
  Receive Date: 20191025
  Receipt Date: 20191025
  Transmission Date: 20200122
  Serious: Yes (Other)
  Sender: FDA-Public Use
  Company Number: IT-PFIZER INC-2019457715

PATIENT
  Age: 38 Year
  Sex: Male
  Weight: 80 kg

DRUGS (1)
  1. METHOTREXATE SODIUM. [Suspect]
     Active Substance: METHOTREXATE SODIUM
     Indication: PSORIASIS
     Dosage: 15 MG, WEEKLY
     Route: 058
     Dates: start: 20190401, end: 20190917

REACTIONS (4)
  - Drug intolerance [Recovered/Resolved]
  - Hypertransaminasaemia [Recovered/Resolved]
  - Asthenia [Recovered/Resolved]
  - Therapy non-responder [Recovered/Resolved]

NARRATIVE: CASE EVENT DATE: 20190918
